FAERS Safety Report 7170306-4 (Version None)
Quarter: 2010Q4

REPORT INFORMATION
  Report Type: 
  Country: None (occurrence: None)
  Receive Date: 20101217
  Receipt Date: 20101102
  Transmission Date: 20110411
  Serious: No
  Sender: FDA-Public Use
  Company Number: A0890304A

PATIENT
  Age: 40 Year
  Sex: Male

DRUGS (7)
  1. LAMICTAL XR [Suspect]
     Dosage: 25MG PER DAY
     Route: 048
     Dates: start: 20101026
  2. KEPPRA [Suspect]
     Route: 065
  3. DILANTIN [Suspect]
     Route: 065
  4. FLUOXETINE [Concomitant]
  5. MULTI-VITAMIN [Concomitant]
  6. ASCORBIC ACID [Concomitant]
  7. ATIVAN [Concomitant]

REACTIONS (6)
  - BALANCE DISORDER [None]
  - DIZZINESS [None]
  - HEADACHE [None]
  - NECK PAIN [None]
  - NERVOUSNESS [None]
  - TREMOR [None]
